FAERS Safety Report 21479165 (Version 1)
Quarter: 2022Q4

REPORT INFORMATION
  Report Type: Spontaneous
  Country: US (occurrence: US)
  Receive Date: 20221019
  Receipt Date: 20221019
  Transmission Date: 20230113
  Serious: No
  Sender: FDA-Public Use
  Company Number: US-ALLERGAN-2134428US

PATIENT
  Sex: Male
  Weight: 96.599 kg

DRUGS (5)
  1. ALPHAGAN P [Suspect]
     Active Substance: BRIMONIDINE TARTRATE
     Indication: Product used for unknown indication
  2. TREPROSTINIL SODIUM [Suspect]
     Active Substance: TREPROSTINIL SODIUM
     Indication: Pulmonary arterial hypertension
     Dosage: 18-54 ?G, QID, INHALATION
     Route: 055
     Dates: start: 20210416
  3. RIOCIGUAT [Concomitant]
     Active Substance: RIOCIGUAT
  4. AMBRISENTAN [Concomitant]
     Active Substance: AMBRISENTAN
  5. ELIQUIS [Concomitant]
     Active Substance: APIXABAN

REACTIONS (2)
  - Lacrimation increased [Unknown]
  - Drug hypersensitivity [Unknown]
